FAERS Safety Report 9504102 (Version 1)
Quarter: 2013Q3

REPORT INFORMATION
  Report Type: Spontaneous
  Country: US (occurrence: US)
  Receive Date: 20130906
  Receipt Date: 20130906
  Transmission Date: 20140515
  Serious: Yes (Hospitalization)
  Sender: FDA-Public Use
  Company Number: US-BAYER-2013-106625

PATIENT
  Age: 33 Year
  Sex: Female
  Weight: 59.1 kg

DRUGS (7)
  1. YAZ [Suspect]
  2. YASMIN [Suspect]
     Indication: CONTRACEPTION
  3. HYDROXYZINE [Concomitant]
     Dosage: 25 MG, UNK
  4. PREDNISONE [Concomitant]
     Indication: DERMATITIS CONTACT
     Dosage: 10 MG, UNK
  5. MACRODANTIN [Concomitant]
  6. ULTRAM [Concomitant]
  7. MACROBID [Concomitant]

REACTIONS (2)
  - Deep vein thrombosis [Recovered/Resolved]
  - Transient ischaemic attack [None]
